FAERS Safety Report 11520325 (Version 1)
Quarter: 2015Q3

REPORT INFORMATION
  Report Type: Report from Study
  Country: US (occurrence: US)
  Receive Date: 20150918
  Receipt Date: 20150918
  Transmission Date: 20151125
  Serious: No
  Sender: FDA-Public Use
  Company Number: PHEH2015US011610

PATIENT
  Sex: Male

DRUGS (2)
  1. COSENTYX [Suspect]
     Active Substance: SECUKINUMAB
     Indication: PSORIASIS
     Route: 065
     Dates: start: 20150402
  2. COSENTYX [Suspect]
     Active Substance: SECUKINUMAB
     Dosage: UNK UKN, QMO
     Route: 065

REACTIONS (3)
  - Sinus disorder [Unknown]
  - Sneezing [Unknown]
  - Drug administration error [Unknown]
